FAERS Safety Report 9428650 (Version 1)
Quarter: 2013Q3

REPORT INFORMATION
  Report Type: Report from Study
  Country: US (occurrence: US)
  Receive Date: 20130730
  Receipt Date: 20130730
  Transmission Date: 20140515
  Serious: No
  Sender: FDA-Public Use
  Company Number: US-ABBOTT-12P-163-1022885-00

PATIENT
  Sex: Male
  Weight: 102.15 kg

DRUGS (8)
  1. NIASPAN (COATED) [Suspect]
     Indication: CARDIAC DISORDER
     Route: 048
     Dates: start: 20121208
  2. NIASPAN (COATED) [Suspect]
     Indication: TOTAL CHOLESTEROL/HDL RATIO ABNORMAL
  3. NIASPAN (COATED) [Suspect]
     Indication: LOW DENSITY LIPOPROTEIN
  4. LIPITOR [Concomitant]
     Indication: PRODUCT USED FOR UNKNOWN INDICATION
     Route: 048
  5. METFORMIN [Concomitant]
     Indication: PRODUCT USED FOR UNKNOWN INDICATION
     Route: 048
  6. CELEBREX [Concomitant]
     Indication: PRODUCT USED FOR UNKNOWN INDICATION
     Route: 048
  7. ADVAIR HFA [Concomitant]
     Indication: PRODUCT USED FOR UNKNOWN INDICATION
  8. ALBUTEROL HFA [Concomitant]
     Indication: PRODUCT USED FOR UNKNOWN INDICATION

REACTIONS (1)
  - Sluggishness [Recovered/Resolved]
